FAERS Safety Report 4620944-5 (Version None)
Quarter: 2005Q1

REPORT INFORMATION
  Report Type: 
  Country: None (occurrence: None)
  Receive Date: 20050325
  Receipt Date: 20050316
  Transmission Date: 20050727
  Serious: Yes (Life-Threatening, Hospitalization)
  Sender: FDA-Public Use
  Company Number: F01200500413

PATIENT
  Age: 71 Year
  Sex: Male

DRUGS (3)
  1. (OXALIPLATIN) - SOLUTION - 100 MG/M2 [Suspect]
     Indication: COLORECTAL CANCER METASTATIC
     Dosage: 155 MG Q2W
     Route: 042
     Dates: start: 20040325, end: 20040325
  2. FLUOROURACIL [Suspect]
     Dosage: 400 MG/M2 BOLUS + 2400 MG/M2 OVER 46 HOURS, Q2W
     Route: 042
     Dates: start: 20040325, end: 20040327
  3. LEUCOVORIN - SOLUTION - 400 MG/M2 [Suspect]
     Dosage: 600 MG Q2W
     Route: 042
     Dates: start: 20040325, end: 20040325

REACTIONS (1)
  - BONE MARROW DEPRESSION [None]
